FAERS Safety Report 12655030 (Version 1)
Quarter: 2016Q3

REPORT INFORMATION
  Report Type: Spontaneous
  Country: US (occurrence: US)
  Receive Date: 20160816
  Receipt Date: 20160816
  Transmission Date: 20161109
  Serious: No
  Sender: FDA-Public Use
  Company Number: US-BEH-2016072268

PATIENT
  Sex: Male
  Weight: 39.2 kg

DRUGS (15)
  1. ACETAMINOPHEN. [Concomitant]
     Active Substance: ACETAMINOPHEN
  2. GAMMAGARD [Concomitant]
     Active Substance: HUMAN IMMUNOGLOBULIN G
  3. HIZENTRA [Suspect]
     Active Substance: HUMAN IMMUNOGLOBULIN G
     Indication: IMMUNODEFICIENCY COMMON VARIABLE
     Dosage: 5 G, QW
     Route: 058
     Dates: start: 20150626
  4. HIZENTRA [Suspect]
     Active Substance: HUMAN IMMUNOGLOBULIN G
     Indication: IMMUNODEFICIENCY
  5. ZYRTEC [Concomitant]
     Active Substance: CETIRIZINE HYDROCHLORIDE
  6. METHYLPHENIDATE. [Concomitant]
     Active Substance: METHYLPHENIDATE
  7. PENICILLIN                         /00000901/ [Concomitant]
     Active Substance: PENICILLIN G
  8. CLONIDINE. [Concomitant]
     Active Substance: CLONIDINE
  9. DIPHENHYDRAMINE. [Concomitant]
     Active Substance: DIPHENHYDRAMINE
  10. DELSYM [Concomitant]
     Active Substance: DEXTROMETHORPHAN
  11. CODEINE [Concomitant]
     Active Substance: CODEINE
  12. EPIPEN [Concomitant]
     Active Substance: EPINEPHRINE
  13. LMX                                /00033401/ [Concomitant]
  14. XOPENEX [Concomitant]
     Active Substance: LEVALBUTEROL HYDROCHLORIDE
  15. RYNEX [Concomitant]

REACTIONS (1)
  - Streptococcal infection [Unknown]
